FAERS Safety Report 4925120-4 (Version None)
Quarter: 2006Q1

REPORT INFORMATION
  Report Type: 
  Country: None (occurrence: None)
  Receive Date: 20060228
  Receipt Date: 20051111
  Transmission Date: 20060701
  Serious: No
  Sender: FDA-Public Use
  Company Number: US-GLAXOSMITHKLINE-A0582219A

PATIENT
  Age: 82 Year
  Sex: Male
  Weight: 70 kg

DRUGS (6)
  1. AVODART [Suspect]
     Dosage: .5MG PER DAY
     Route: 048
     Dates: start: 20050103
  2. COUMADIN [Concomitant]
     Indication: ATRIAL FIBRILLATION
     Dosage: 4MG PER DAY
     Route: 048
  3. VERAPAMIL [Concomitant]
     Dosage: 240MG PER DAY
     Route: 048
  4. VASOTEC RPD [Concomitant]
     Dosage: 2.5MG PER DAY
     Route: 048
  5. ZOCOR [Concomitant]
     Indication: BLOOD CHOLESTEROL INCREASED
     Dosage: 20MG PER DAY
     Route: 048
  6. FUROSEMIDE [Concomitant]
     Dosage: 20MG PER DAY
     Route: 048

REACTIONS (2)
  - GYNAECOMASTIA [None]
  - NIPPLE PAIN [None]
